FAERS Safety Report 8494365-1 (Version None)
Quarter: 2012Q2

REPORT INFORMATION
  Report Type: 
  Country: None (occurrence: None)
  Receive Date: 20120628
  Receipt Date: 20120612
  Transmission Date: 20120825
  Serious: Yes (Hospitalization)
  Sender: FDA-Public Use
  Company Number: US-2012-10767

PATIENT
  Age: 4 Year
  Sex: Female

DRUGS (6)
  1. BUSULFAN [Suspect]
     Indication: STEM CELL TRANSPLANT
     Dosage: 16 MG/KG, (TOTAL DOSE 280MG), INTRAVENOUS
     Route: 042
  2. BUSULFAN [Suspect]
     Indication: BONE MARROW CONDITIONING REGIMEN
     Dosage: 16 MG/KG, (TOTAL DOSE 280MG), INTRAVENOUS
     Route: 042
  3. METHYLPREDNISOLONE [Concomitant]
  4. CYCLOPHOSPHAMIDE [Concomitant]
  5. CYCLOSOPRINE A (CICLOSPORIN) [Concomitant]
  6. METHOTREXATE SODIUM [Concomitant]

REACTIONS (4)
  - CONVULSION [None]
  - INTRACRANIAL VENOUS SINUS THROMBOSIS [None]
  - GRAFT VERSUS HOST DISEASE [None]
  - RASH MACULO-PAPULAR [None]
